FAERS Safety Report 4342699-4 (Version None)
Quarter: 2004Q2

REPORT INFORMATION
  Report Type: 
  Country: None (occurrence: None)
  Receive Date: 20040420
  Receipt Date: 20040409
  Transmission Date: 20050107
  Serious: Yes (Hospitalization)
  Sender: FDA-Public Use
  Company Number: FLUV00303003398

PATIENT
  Age: 80 Year
  Sex: Male

DRUGS (1)
  1. LUVOX [Suspect]
     Indication: ILL-DEFINED DISORDER
     Dosage: 25 MG DAILY PO
     Route: 048
     Dates: start: 20010910, end: 20020416

REACTIONS (1)
  - NEUROLEPTIC MALIGNANT SYNDROME [None]
